FAERS Safety Report 6191149-4 (Version None)
Quarter: 2009Q2

REPORT INFORMATION
  Report Type: 
  Country: None (occurrence: None)
  Receive Date: 20090513
  Receipt Date: 20090513
  Transmission Date: 20091009
  Serious: Yes (Other)
  Sender: FDA-Public Use
  Company Number: None

PATIENT
  Age: 14 Year
  Sex: Male

DRUGS (3)
  1. MORPHINE [Suspect]
     Indication: ANALGESIC THERAPY
     Dosage: IVP X 1 DOSE
     Route: 042
     Dates: start: 20090413
  2. DEMEROL [Suspect]
     Indication: ANALGESIC THERAPY
     Dosage: IVP X 1 DOSE
     Route: 042
     Dates: start: 20090413
  3. PHENERGAN [Concomitant]

REACTIONS (3)
  - INFUSION SITE REACTION [None]
  - RASH MACULAR [None]
  - SKIN DISCOLOURATION [None]
